FAERS Safety Report 7379834-X (Version None)
Quarter: 2011Q1

REPORT INFORMATION
  Report Type: 
  Country: None (occurrence: None)
  Receive Date: 20110318
  Receipt Date: 20110310
  Transmission Date: 20110831
  Serious: Yes (Death)
  Sender: FDA-Public Use
  Company Number: 114193

PATIENT
  Age: 45 Year
  Sex: Male

DRUGS (1)
  1. BUPRENORPHINE HCL [Suspect]

REACTIONS (8)
  - LOSS OF CONSCIOUSNESS [None]
  - BURNS SECOND DEGREE [None]
  - DYSPNOEA [None]
  - PULMONARY OEDEMA [None]
  - SELF-MEDICATION [None]
  - HAEMATOMA [None]
  - CONTUSION [None]
  - TOXICOLOGIC TEST ABNORMAL [None]
